FAERS Safety Report 16912108 (Version 4)
Quarter: 2019Q4

REPORT INFORMATION
  Report Type: Spontaneous
  Country: BR (occurrence: BR)
  Receive Date: 20191014
  Receipt Date: 20191217
  Transmission Date: 20200122
  Serious: Yes (Other)
  Sender: FDA-Public Use
  Company Number: BR-AMGEN-BRASP2019164185

PATIENT
  Age: 72 Year
  Sex: Female

DRUGS (4)
  1. ENBREL [Suspect]
     Active Substance: ETANERCEPT
     Dosage: UNK
     Route: 065
     Dates: start: 2015, end: 2019
  2. ENBREL [Suspect]
     Active Substance: ETANERCEPT
     Indication: PRODUCT USED FOR UNKNOWN INDICATION
     Dosage: UNK
     Route: 065
     Dates: start: 2019, end: 201908
  3. ENBREL [Suspect]
     Active Substance: ETANERCEPT
     Dosage: UNK
     Route: 065
     Dates: start: 2019
  4. ENBREL [Suspect]
     Active Substance: ETANERCEPT
     Dosage: 25 MILLIGRAM, 2 TIMES/WK
     Route: 065
     Dates: start: 2011, end: 2015

REACTIONS (13)
  - Device issue [Unknown]
  - Gastritis [Unknown]
  - Oesophagitis [Unknown]
  - Superficial injury of eye [Unknown]
  - Injection site erythema [Unknown]
  - Musculoskeletal disorder [Unknown]
  - Sjogren^s syndrome [Unknown]
  - Aptyalism [Unknown]
  - Hypotrichosis [Unknown]
  - Product use issue [Unknown]
  - External ear disorder [Unknown]
  - Skin disorder [Unknown]
  - Gastric ulcer [Unknown]
